FAERS Safety Report 18794935 (Version 1)
Quarter: 2021Q1

REPORT INFORMATION
  Report Type: Report from Study
  Country: US (occurrence: US)
  Receive Date: 20210127
  Receipt Date: 20210127
  Transmission Date: 20210419
  Serious: Yes (Hospitalization)
  Sender: FDA-Public Use
  Company Number: US-KARYOPHARM-2020KPT001489

PATIENT
  Age: 47 Year
  Sex: Female

DRUGS (2)
  1. PACLITAXEL. [Suspect]
     Active Substance: PACLITAXEL
     Indication: OVARIAN CANCER
     Dosage: 80 MG/M2, WEEKLY
     Route: 042
     Dates: start: 20201112
  2. SELINEXOR [Suspect]
     Active Substance: SELINEXOR
     Indication: OVARIAN CANCER
     Dosage: 60 MG, 2X/WEEK
     Route: 048
     Dates: start: 20201114

REACTIONS (2)
  - Anaemia [Recovered/Resolved]
  - Small intestinal obstruction [Recovered/Resolved]

NARRATIVE: CASE EVENT DATE: 20201125
